FAERS Safety Report 8974540 (Version 2)
Quarter: 2013Q2

REPORT INFORMATION
  Report Type: Spontaneous
  Country: US (occurrence: US)
  Receive Date: 20121220
  Receipt Date: 20130410
  Transmission Date: 20140414
  Serious: No
  Sender: FDA-Public Use
  Company Number: US-009507513-1212USA003692

PATIENT
  Sex: Male
  Weight: 122.45 kg

DRUGS (4)
  1. JANUMET XR [Suspect]
     Indication: DIABETES MELLITUS
     Dosage: 50/1000 MG
     Route: 048
     Dates: start: 201301, end: 201302
  2. JANUVIA [Suspect]
     Dosage: 100 MG, UNK
     Route: 048
  3. METFORMIN [Suspect]
     Dosage: 500 MG, BID
  4. COUMADIN [Concomitant]

REACTIONS (3)
  - Glycosylated haemoglobin increased [Recovered/Resolved]
  - Blood glucose increased [Unknown]
  - Drug ineffective [Unknown]
